FAERS Safety Report 21753895 (Version 1)
Quarter: 2022Q4

REPORT INFORMATION
  Report Type: Spontaneous
  Country: BE (occurrence: BE)
  Receive Date: 20221220
  Receipt Date: 20221220
  Transmission Date: 20230112
  Serious: Yes (Other)
  Sender: FDA-Public Use
  Company Number: BE-009507513-2212BEL006445

PATIENT
  Age: 55 Year
  Sex: Male

DRUGS (3)
  1. TEMOZOLOMIDE [Suspect]
     Active Substance: TEMOZOLOMIDE
     Indication: Glioblastoma multiforme
     Dosage: UNK
     Route: 048
  2. LOMUSTINE\PROCARBAZINE\VINCRISTINE [Suspect]
     Active Substance: LOMUSTINE\PROCARBAZINE\VINCRISTINE
     Indication: Glioblastoma multiforme
     Dosage: UNK
  3. LOMUSTINE\PROCARBAZINE\VINCRISTINE [Suspect]
     Active Substance: LOMUSTINE\PROCARBAZINE\VINCRISTINE
     Indication: Disease progression

REACTIONS (1)
  - Malignant neoplasm progression [Unknown]
